FAERS Safety Report 14377325 (Version 1)
Quarter: 2018Q1

REPORT INFORMATION
  Report Type: Report from Study
  Country: US (occurrence: US)
  Receive Date: 20180111
  Receipt Date: 20180111
  Transmission Date: 20180509
  Serious: Yes (Other)
  Sender: FDA-Public Use
  Company Number: PHEH2018US000821

PATIENT
  Sex: Male

DRUGS (2)
  1. CARVEDILOL. [Concomitant]
     Active Substance: CARVEDILOL
     Indication: PRODUCT USED FOR UNKNOWN INDICATION
     Route: 065
  2. ENTRESTO [Suspect]
     Active Substance: SACUBITRIL\VALSARTAN
     Indication: PRODUCT USED FOR UNKNOWN INDICATION
     Dosage: 0.5 DF (HALF TABLET MORNING AND HALF TABLET NIGHT), BID
     Route: 048

REACTIONS (11)
  - Arterial occlusive disease [Unknown]
  - Sensitivity to weather change [Unknown]
  - Oxygen consumption decreased [Unknown]
  - Cardiovascular disorder [Unknown]
  - Gait inability [Unknown]
  - Spinal deformity [Unknown]
  - Wrong technique in product usage process [Unknown]
  - Vascular stent occlusion [Unknown]
  - Back disorder [Unknown]
  - Dyspnoea [Unknown]
  - Back pain [Unknown]
